FAERS Safety Report 6863787-4 (Version None)
Quarter: 2010Q3

REPORT INFORMATION
  Report Type: 
  Country: None (occurrence: None)
  Receive Date: 20100721
  Receipt Date: 20080408
  Transmission Date: 20110219
  Serious: Yes (Other)
  Sender: FDA-Public Use
  Company Number: US-PFIZER INC-2008021480

PATIENT

DRUGS (6)
  1. CHANTIX [Suspect]
  2. SIMVASTATIN [Concomitant]
  3. ZIAC [Concomitant]
  4. TRICOR [Concomitant]
  5. PROTONIX [Concomitant]
  6. ALLEGRA [Concomitant]

REACTIONS (5)
  - ABNORMAL DREAMS [None]
  - ANGER [None]
  - ANXIETY [None]
  - DEPRESSED MOOD [None]
  - SUICIDAL IDEATION [None]
